FAERS Safety Report 18077954 (Version 1)
Quarter: 2020Q3

REPORT INFORMATION
  Report Type: Spontaneous
  Country: TW (occurrence: TW)
  Receive Date: 20200727
  Receipt Date: 20200727
  Transmission Date: 20201103
  Serious: Yes (Other)
  Sender: FDA-Public Use
  Company Number: NVSC2020TW208408

PATIENT
  Age: 46 Year
  Sex: Female

DRUGS (2)
  1. CIPROFLOXACIN. [Suspect]
     Active Substance: CIPROFLOXACIN
     Indication: CORNEAL DEGENERATION
     Dosage: UNK UNK, QID
     Route: 065
  2. DEXAMETHASONE. [Suspect]
     Active Substance: DEXAMETHASONE
     Indication: CORNEAL DEGENERATION
     Dosage: UNK UNK, QID
     Route: 065

REACTIONS (2)
  - Corneal degeneration [Unknown]
  - Product use in unapproved indication [Unknown]
